FAERS Safety Report 21905937 (Version 2)
Quarter: 2023Q1

REPORT INFORMATION
  Report Type: Report from Study
  Country: US (occurrence: US)
  Receive Date: 20230124
  Receipt Date: 20230327
  Transmission Date: 20230417
  Serious: Yes (Hospitalization, Other)
  Sender: FDA-Public Use
  Company Number: US-ABBVIE-4280293

PATIENT
  Sex: Female

DRUGS (1)
  1. HUMIRA [Suspect]
     Active Substance: ADALIMUMAB
     Indication: Psoriatic arthropathy
     Route: 058

REACTIONS (6)
  - Ureteric stenosis [Recovering/Resolving]
  - Nephrolithiasis [Recovering/Resolving]
  - Weight decreased [Unknown]
  - Kidney infection [Recovering/Resolving]
  - Clostridium test positive [Unknown]
  - Pain [Unknown]
